FAERS Safety Report 23880544 (Version 2)
Quarter: 2024Q2

REPORT INFORMATION
  Report Type: Spontaneous
  Country: US (occurrence: US)
  Receive Date: 20240521
  Receipt Date: 20240523
  Transmission Date: 20240716
  Serious: No
  Sender: FDA-Public Use
  Company Number: US-BIOGEN-2022BI01134239

PATIENT
  Sex: Male

DRUGS (2)
  1. TYSABRI [Suspect]
     Active Substance: NATALIZUMAB
     Indication: Multiple sclerosis
     Route: 050
     Dates: start: 20140501
  2. TYSABRI [Suspect]
     Active Substance: NATALIZUMAB
     Route: 050
     Dates: start: 2021

REACTIONS (7)
  - Prescribed underdose [Not Recovered/Not Resolved]
  - High density lipoprotein decreased [Unknown]
  - Low density lipoprotein increased [Unknown]
  - Vitamin B12 increased [Unknown]
  - Vitamin D increased [Unknown]
  - Albumin globulin ratio increased [Unknown]
  - Alanine aminotransferase increased [Unknown]

NARRATIVE: CASE EVENT DATE: 20210101
